FAERS Safety Report 16114417 (Version 6)
Quarter: 2019Q3

REPORT INFORMATION
  Report Type: Spontaneous
  Country: US (occurrence: US)
  Receive Date: 20190325
  Receipt Date: 20190726
  Transmission Date: 20191004
  Serious: Yes (Other)
  Sender: FDA-Public Use
  Company Number: US-PFIZER INC-2019124452

PATIENT
  Age: 64 Year
  Sex: Female
  Weight: 49 kg

DRUGS (17)
  1. METHYLPHENIDATE. [Concomitant]
     Active Substance: METHYLPHENIDATE
     Indication: SOMNOLENCE
     Dosage: UNK
     Dates: start: 2015
  2. BACLOFEN. [Concomitant]
     Active Substance: BACLOFEN
     Indication: MUSCLE SPASMS
     Dosage: 20 MG, AS NEEDED  (10MG TABLET, 2 TABLETS ABOUT 4 TIMES PER DAY AS NEEDED)
     Dates: start: 2000
  3. HYDROMORPHONE [Concomitant]
     Active Substance: HYDROMORPHONE
     Indication: PAIN
     Dosage: 40 MG, AS NEEDED (5 TABLETS AT NIGHT AS NEEDED)
     Dates: start: 2000
  4. ALFUZOSIN [Concomitant]
     Active Substance: ALFUZOSIN
     Dosage: UNK
     Dates: start: 2010
  5. HYDROXYZINE PAM [Concomitant]
     Active Substance: HYDROXYZINE PAMOATE
     Dosage: UNK (60/ 2 EA PM)
  6. ESTRADIOL. [Concomitant]
     Active Substance: ESTRADIOL
     Indication: HOT FLUSH
     Dosage: 2.5 MG, DAILY
     Dates: start: 2000
  7. METHYLPHENIDATE. [Concomitant]
     Active Substance: METHYLPHENIDATE
     Dosage: UNK, AS NEEDED [2 TABLETS 3 TIMES A DAY, BUT SHE NORMALLY JUST TAKES ALL 6 TABLETS AT ONCE IF NEEDE]
     Dates: start: 2016
  8. LYRICA [Suspect]
     Active Substance: PREGABALIN
     Indication: MYALGIA
  9. ESTRADIOL. [Concomitant]
     Active Substance: ESTRADIOL
     Indication: MENOPAUSE
     Dosage: UNK
     Dates: start: 1995
  10. LYRICA [Suspect]
     Active Substance: PREGABALIN
     Indication: EHLERS-DANLOS SYNDROME
     Dosage: 75 MG, 3X/DAY (75MG 3X4 DAY)
     Route: 048
     Dates: start: 201812
  11. HYDROXYZINE PAM [Concomitant]
     Active Substance: HYDROXYZINE PAMOATE
     Indication: ECZEMA
     Dosage: UNK
     Dates: start: 1975
  12. FLUCONAZOLE. [Concomitant]
     Active Substance: FLUCONAZOLE
     Indication: FUNGAL INFECTION
     Dosage: UNK UNK, AS NEEDED (6/ 1 TAB A DAY AS NEEDED)
  13. HYDROXYZINE PAM [Concomitant]
     Active Substance: HYDROXYZINE PAMOATE
     Dosage: 0.5 MG, 1X/DAY
     Dates: start: 1986
  14. OXYCODONE [Concomitant]
     Active Substance: OXYCODONE
     Indication: PAIN
     Dosage: 30 MG, AS NEEDED (2 TABLETS UP TO 3 TIMES PER DAY)
     Dates: start: 2000
  15. ALFUZOSIN [Concomitant]
     Active Substance: ALFUZOSIN
     Indication: DYSURIA
     Dosage: 10 MG, 1X/DAY
     Dates: start: 2000
  16. LYRICA [Suspect]
     Active Substance: PREGABALIN
     Indication: NEURALGIA
     Dosage: 75 MG, 3 TIMES DAILY
     Route: 048
     Dates: start: 201807
  17. POLYETHYLENE GLYCOL [Concomitant]
     Active Substance: POLYETHYLENE GLYCOLS
     Indication: IRRITABLE BOWEL SYNDROME
     Dosage: UNK
     Dates: start: 2013

REACTIONS (7)
  - Weight decreased [Recovered/Resolved]
  - Loss of consciousness [Not Recovered/Not Resolved]
  - Spinal fracture [Not Recovered/Not Resolved]
  - Fall [Not Recovered/Not Resolved]
  - Alopecia [Not Recovered/Not Resolved]
  - Decreased appetite [Recovered/Resolved]
  - Amnesia [Not Recovered/Not Resolved]

NARRATIVE: CASE EVENT DATE: 201807
